FAERS Safety Report 6947188-6 (Version None)
Quarter: 2010Q3

REPORT INFORMATION
  Report Type: 
  Country: None (occurrence: None)
  Receive Date: 20100827
  Receipt Date: 20090902
  Transmission Date: 20110219
  Serious: No
  Sender: FDA-Public Use
  Company Number: US-ABBOTT-09P-163-0595295-00

PATIENT
  Sex: Female
  Weight: 83.99 kg

DRUGS (4)
  1. NIASPAN [Suspect]
     Indication: BLOOD TRIGLYCERIDES INCREASED
     Route: 048
     Dates: start: 20090825, end: 20090830
  2. NIASPAN [Suspect]
     Route: 048
     Dates: start: 20090831, end: 20090901
  3. MULTI-VITAMIN [Concomitant]
     Indication: MEDICAL DIET
     Route: 048
  4. AVISTA [Concomitant]
     Indication: BREAST HYPERPLASIA
     Dosage: UNKNOWN
     Route: 048

REACTIONS (3)
  - DIZZINESS [None]
  - FLUSHING [None]
  - PRURITUS [None]
